FAERS Safety Report 14382869 (Version 2)
Quarter: 2018Q2

REPORT INFORMATION
  Report Type: Report from Study
  Country: US (occurrence: US)
  Receive Date: 20180113
  Receipt Date: 20180509
  Transmission Date: 20180711
  Serious: No
  Sender: FDA-Public Use
  Company Number: PHEH2018US001821

PATIENT
  Sex: Male

DRUGS (1)
  1. COSENTYX [Suspect]
     Active Substance: SECUKINUMAB
     Indication: PRODUCT USED FOR UNKNOWN INDICATION
     Route: 065

REACTIONS (7)
  - Condition aggravated [Unknown]
  - Hypersensitivity [Unknown]
  - Stress [Unknown]
  - Feeling abnormal [Unknown]
  - Psoriasis [Unknown]
  - Skin disorder [Unknown]
  - Anxiety [Unknown]
